FAERS Safety Report 8292807-8 (Version None)
Quarter: 2012Q2

REPORT INFORMATION
  Report Type: 
  Country: None (occurrence: None)
  Receive Date: 20120417
  Receipt Date: 20110512
  Transmission Date: 20120825
  Serious: Yes (Hospitalization)
  Sender: FDA-Public Use
  Company Number: US-ASTRAZENECA-2011SE29125

PATIENT
  Sex: Female

DRUGS (3)
  1. NEXIUM [Suspect]
     Route: 048
  2. PEPCID [Concomitant]
  3. SEROQUEL [Suspect]
     Route: 048

REACTIONS (6)
  - HEADACHE [None]
  - CHOKING SENSATION [None]
  - HYPERTENSION [None]
  - DEPRESSED MOOD [None]
  - GASTROOESOPHAGEAL REFLUX DISEASE [None]
  - INCREASED UPPER AIRWAY SECRETION [None]
